FAERS Safety Report 10025566 (Version 1)
Quarter: 2014Q1

REPORT INFORMATION
  Report Type: Spontaneous
  Country: DE (occurrence: DE)
  Receive Date: 20140320
  Receipt Date: 20140320
  Transmission Date: 20141002
  Serious: Yes (Other)
  Sender: FDA-Public Use
  Company Number: DE-BRISTOL-MYERS SQUIBB COMPANY-20477394

PATIENT
  Age: 48 Year
  Sex: Male
  Weight: 89 kg

DRUGS (2)
  1. YERVOY [Suspect]
     Indication: MALIGNANT MELANOMA
     Dosage: 1DF: 5MG/ML,3 MG/ KG 250 MG/89 KG?4 INFUSION
     Dates: start: 20130925, end: 201312
  2. BLEOMYCIN [Concomitant]
     Dosage: ONCE

REACTIONS (1)
  - Respiratory tract inflammation [Not Recovered/Not Resolved]
